FAERS Safety Report 6085310-7 (Version None)
Quarter: 2009Q1

REPORT INFORMATION
  Report Type: 
  Country: None (occurrence: None)
  Receive Date: 20090220
  Receipt Date: 20090210
  Transmission Date: 20090719
  Serious: Yes (Death, Other)
  Sender: FDA-Public Use
  Company Number: US-BAXTER-2009BH002406

PATIENT
  Age: 55 Year
  Sex: Female

DRUGS (1)
  1. HEPARIN SODIUM INJECTION [Suspect]
     Indication: PROPHYLAXIS
     Route: 065
     Dates: start: 20070101

REACTIONS (6)
  - ANOXIC ENCEPHALOPATHY [None]
  - BLOOD PRESSURE IMMEASURABLE [None]
  - BRAIN INJURY [None]
  - CARDIAC ARREST [None]
  - PULSE ABSENT [None]
  - UNRESPONSIVE TO STIMULI [None]
